FAERS Safety Report 19593162 (Version 1)
Quarter: 2021Q3

REPORT INFORMATION
  Report Type: Spontaneous
  Country: US (occurrence: US)
  Receive Date: 20210721
  Receipt Date: 20210721
  Transmission Date: 20211014
  Serious: No
  Sender: FDA-Public Use
  Company Number: None

PATIENT

DRUGS (1)
  1. POTASSIUM CHLORIDE IV [Suspect]
     Active Substance: POTASSIUM CHLORIDE

REACTIONS (4)
  - Pain [None]
  - Monoplegia [None]
  - Medication error [None]
  - Screaming [None]
